FAERS Safety Report 4331778-3 (Version None)
Quarter: 2004Q2

REPORT INFORMATION
  Report Type: 
  Country: None (occurrence: None)
  Receive Date: 20040405
  Receipt Date: 20030722
  Transmission Date: 20050107
  Serious: No
  Sender: FDA-Public Use
  Company Number: US-GLAXOSMITHKLINE-A0418671A

PATIENT
  Age: 68 Year
  Sex: Female
  Weight: 59.1 kg

DRUGS (3)
  1. FLOVENT [Suspect]
     Indication: ASTHMA
     Dosage: 88MCG TWICE PER DAY
     Route: 055
     Dates: start: 19960101
  2. SEREVENT [Concomitant]
     Route: 055
     Dates: end: 20030701
  3. SEREVENT [Concomitant]
     Route: 055
     Dates: start: 20030701

REACTIONS (1)
  - WEIGHT INCREASED [None]
